FAERS Safety Report 16088987 (Version 1)
Quarter: 2019Q1

REPORT INFORMATION
  Report Type: Spontaneous
  Country: US (occurrence: US)
  Receive Date: 20190319
  Receipt Date: 20190319
  Transmission Date: 20190418
  Serious: Yes (Life-Threatening)
  Sender: FDA-Public Use
  Company Number: US-ACS-001336

PATIENT
  Age: 34 Year
  Sex: Male

DRUGS (2)
  1. SIMVASTATIN 20 MG [Concomitant]
     Active Substance: SIMVASTATIN
     Route: 048
  2. CEFTRIAXONE FOR INJECTION 1G [Suspect]
     Active Substance: CEFTRIAXONE
     Route: 042

REACTIONS (1)
  - Hypersensitivity [Unknown]
